FAERS Safety Report 8541214-9 (Version None)
Quarter: 2012Q3

REPORT INFORMATION
  Report Type: 
  Country: None (occurrence: None)
  Receive Date: 20120726
  Receipt Date: 20110921
  Transmission Date: 20120928
  Serious: No
  Sender: FDA-Public Use
  Company Number: US-ASTRAZENECA-2011SE57202

PATIENT
  Age: 47 Year
  Sex: Male

DRUGS (8)
  1. SEROQUEL [Suspect]
     Indication: DEMENTIA
     Route: 048
  2. PROZAC [Concomitant]
  3. CLARITIN [Concomitant]
  4. CLODIPINE [Concomitant]
  5. FLONASE [Concomitant]
  6. FLOMAX [Concomitant]
  7. TOPAMAX [Concomitant]
  8. SEROQUEL [Suspect]
     Indication: ABNORMAL BEHAVIOUR
     Route: 048

REACTIONS (2)
  - OFF LABEL USE [None]
  - EXTRAPYRAMIDAL DISORDER [None]
